FAERS Safety Report 10625796 (Version 1)
Quarter: 2014Q4

REPORT INFORMATION
  Report Type: Spontaneous
  Country: US (occurrence: None)
  Receive Date: 20141121
  Receipt Date: 20141121
  Transmission Date: 20150529
  Serious: No
  Sender: FDA-Public Use
  Company Number: 163-10004-14084540

PATIENT
  Age: 52 Year
  Sex: Female
  Weight: 57.15 kg

DRUGS (2)
  1. OTEZLA [Suspect]
     Active Substance: APREMILAST
     Indication: PSORIATIC ARTHROPATHY
     Dosage: 60 MG,  2 IN 1 D,  PO
     Route: 048
     Dates: start: 20140812
  2. CLOBETASOL (CLOBETASOL) [Concomitant]
     Active Substance: CLOBETASOL

REACTIONS (3)
  - Diarrhoea [None]
  - Headache [None]
  - Nausea [None]

NARRATIVE: CASE EVENT DATE: 20140813
